FAERS Safety Report 17532572 (Version 1)
Quarter: 2020Q1

REPORT INFORMATION
  Report Type: Spontaneous
  Country: FR (occurrence: FR)
  Receive Date: 20200312
  Receipt Date: 20200312
  Transmission Date: 20200409
  Serious: Yes (Hospitalization)
  Sender: FDA-Public Use
  Company Number: FR-ALK-ABELLO A/S-2020AA000673

PATIENT

DRUGS (1)
  1. GRAZAX [Suspect]
     Active Substance: PHLEUM PRATENSE POLLEN
     Indication: IMMUNE TOLERANCE INDUCTION
     Dosage: UNK
     Dates: start: 20200220, end: 20200223

REACTIONS (3)
  - Chapped lips [Recovered/Resolved]
  - Asthmatic crisis [Unknown]
  - Cheilitis [Recovered/Resolved]

NARRATIVE: CASE EVENT DATE: 20200220
